FAERS Safety Report 14334176 (Version 1)
Quarter: 2017Q4

REPORT INFORMATION
  Report Type: Spontaneous
  Country: IT (occurrence: IT)
  Receive Date: 20171228
  Receipt Date: 20171228
  Transmission Date: 20180321
  Serious: Yes (Death)
  Sender: FDA-Public Use
  Company Number: IT-TEVA-2017-IT-839164

PATIENT
  Age: 71 Year
  Sex: Male

DRUGS (1)
  1. OXALIPLATINO TEVA 5 MG / ML [Suspect]
     Active Substance: OXALIPLATIN
     Indication: COLON CANCER
     Route: 041
     Dates: start: 20171110, end: 20171110

REACTIONS (6)
  - Atrial fibrillation [Fatal]
  - Hypotension [Fatal]
  - Paraesthesia [Fatal]
  - Pulmonary oedema [Fatal]
  - Loss of consciousness [Fatal]
  - Hypersensitivity [Fatal]

NARRATIVE: CASE EVENT DATE: 20171110
